FAERS Safety Report 18303414 (Version 2)
Quarter: 2020Q3

REPORT INFORMATION
  Report Type: Spontaneous
  Country: IL (occurrence: IL)
  Receive Date: 20200923
  Receipt Date: 20200928
  Transmission Date: 20201103
  Serious: No
  Sender: FDA-Public Use
  Company Number: IL-PFIZER INC-2020360634

PATIENT
  Age: 46 Year
  Sex: Female

DRUGS (3)
  1. BONEFOS [Suspect]
     Active Substance: CLODRONATE DISODIUM
     Dosage: UNK
     Dates: start: 201912
  2. IBRANCE [Suspect]
     Active Substance: PALBOCICLIB
     Indication: BREAST CANCER METASTATIC
     Dosage: UNK
     Dates: start: 201912
  3. LUCRIN [Suspect]
     Active Substance: LEUPROLIDE ACETATE
     Dosage: UNK
     Dates: start: 201912

REACTIONS (1)
  - Therapeutic response unexpected [Unknown]

NARRATIVE: CASE EVENT DATE: 202005
